FAERS Safety Report 5880900-6 (Version None)
Quarter: 2008Q3

REPORT INFORMATION
  Report Type: 
  Country: None (occurrence: None)
  Receive Date: 20080912
  Receipt Date: 20080612
  Transmission Date: 20090109
  Serious: No
  Sender: FDA-Public Use
  Company Number: US-ABBOTT-08P-163-0457130-00

PATIENT
  Sex: Female

DRUGS (21)
  1. HUMIRA [Suspect]
     Indication: PSORIASIS
     Route: 058
     Dates: start: 20080507
  2. HUMIRA [Suspect]
     Indication: PSORIATIC ARTHROPATHY
     Route: 058
  3. HUMIRA [Suspect]
  4. LIDOCAINE [Concomitant]
     Indication: INTERVERTEBRAL DISC PROTRUSION
     Dosage: 5% PATCH
     Route: 062
  5. GABAPENTIN [Concomitant]
     Indication: PAIN
     Dosage: 3PILLS IN AM AND 3PILLS IN PM
     Route: 048
  6. LORTAB [Concomitant]
     Indication: PAIN
     Dosage: 4 X 7.5MG UP TO 30MG AS NEEDED
     Route: 048
  7. PHENERGAN HCL [Concomitant]
     Indication: NAUSEA
     Route: 048
  8. PHENERGAN HCL [Concomitant]
  9. CYCLOBENZAPRINE HCL [Concomitant]
     Indication: PAIN
     Route: 048
  10. ALPRAZOLAM [Concomitant]
     Indication: ANXIETY
     Route: 048
  11. BUPROPION HYDROCHLORIDE [Concomitant]
     Indication: DEPRESSION
     Route: 048
  12. RISPERIDONE [Concomitant]
     Indication: SLEEP DISORDER THERAPY
     Route: 048
  13. HYDROCHLOROTHIAZIDE [Concomitant]
     Indication: HYPERTENSION
     Route: 048
  14. METOPROLOL TARTRATE [Concomitant]
     Indication: HYPERTENSION
     Route: 048
  15. POTASSIUM CHLORIDE [Concomitant]
     Indication: MINERAL SUPPLEMENTATION
     Route: 048
  16. LORATADINE [Concomitant]
     Indication: SEASONAL ALLERGY
     Route: 048
  17. FERROUS SULFATE TAB [Concomitant]
     Indication: ANAEMIA
     Route: 048
     Dates: start: 20070101, end: 20080608
  18. FERROUS SULFATE TAB [Concomitant]
     Route: 048
     Dates: start: 20080609
  19. ALBUTEROL SPIROS [Concomitant]
     Indication: ASTHMA
     Dosage: 1-2 PUFFS AS NEEDED ONCE WEEKLY
     Route: 055
  20. RANITIDINE HYDROCHLORIDE [Concomitant]
     Indication: DYSPEPSIA
     Dosage: 15 MG IN AM AND 15 IN PM
     Route: 048
  21. OMEPRAZOLE [Concomitant]
     Indication: GASTROOESOPHAGEAL REFLUX DISEASE
     Route: 048

REACTIONS (3)
  - BLOOD IRON DECREASED [None]
  - BRONCHITIS [None]
  - COUGH [None]
